FAERS Safety Report 4562037-1 (Version None)
Quarter: 2005Q1

REPORT INFORMATION
  Report Type: 
  Country: None (occurrence: None)
  Receive Date: 20050125
  Receipt Date: 20050125
  Transmission Date: 20050727
  Serious: Yes (Hospitalization)
  Sender: FDA-Public Use
  Company Number: None

PATIENT
  Age: 53 Year
  Sex: Female
  Weight: 114.3065 kg

DRUGS (2)
  1. LISINOPRIL [Suspect]
     Indication: DIABETES MELLITUS
     Dosage: 40MG  QD  ORAL
     Route: 048
     Dates: start: 19990801, end: 20041206
  2. LISINOPRIL [Suspect]
     Indication: HYPERTENSION
     Dosage: 40MG  QD  ORAL
     Route: 048
     Dates: start: 19990801, end: 20041206

REACTIONS (2)
  - DYSPNOEA [None]
  - LOCALISED OEDEMA [None]
